FAERS Safety Report 10716117 (Version 1)
Quarter: 2015Q1

REPORT INFORMATION
  Report Type: Spontaneous
  Country: FR (occurrence: FR)
  Receive Date: 20150116
  Receipt Date: 20150116
  Transmission Date: 20150721
  Serious: Yes (Hospitalization)
  Sender: FDA-Public Use
  Company Number: FR-JNJFOC-20150101540

PATIENT
  Age: 23 Year
  Sex: Female

DRUGS (3)
  1. TRUVADA [Concomitant]
     Active Substance: EMTRICITABINE\TENOFOVIR DISOPROXIL FUMARATE
     Indication: EXPOSURE VIA BLOOD
     Route: 048
     Dates: start: 20141122, end: 20141203
  2. NORVIR [Suspect]
     Active Substance: RITONAVIR
     Indication: EXPOSURE VIA BLOOD
     Route: 048
     Dates: start: 20141122, end: 20141203
  3. PREZISTA [Suspect]
     Active Substance: DARUNAVIR ETHANOLATE
     Indication: EXPOSURE VIA BLOOD
     Route: 048
     Dates: start: 20141122, end: 20141203

REACTIONS (4)
  - Lip oedema [Recovered/Resolved]
  - Product use issue [Unknown]
  - Rash maculo-papular [Recovered/Resolved]
  - Dyspnoea [Recovered/Resolved]

NARRATIVE: CASE EVENT DATE: 20141130
